FAERS Safety Report 7221571-6 (Version None)
Quarter: 2011Q1

REPORT INFORMATION
  Report Type: 
  Country: None (occurrence: None)
  Receive Date: 20110112
  Receipt Date: 20110107
  Transmission Date: 20110831
  Serious: Yes (Hospitalization)
  Sender: FDA-Public Use
  Company Number: DE-PFIZER INC-2011004574

PATIENT
  Age: 73 Year
  Sex: Male

DRUGS (15)
  1. SUTENT [Suspect]
     Indication: METASTATIC RENAL CELL CARCINOMA
     Dosage: DOSE ACCORDING TO PROTOCOL (37.5MG)
     Dates: start: 20100318
  2. SALBULAIR [Concomitant]
     Dosage: UNK
     Dates: start: 20081010
  3. COSOPT [Concomitant]
     Dosage: UNK
     Dates: start: 20100610
  4. NOOTROP [Concomitant]
     Dosage: 1200 MG, 1X/DAY
     Dates: start: 20100630
  5. SIMVASTATIN [Concomitant]
     Dosage: 40 MG, 1X/DAY
     Dates: start: 20040701
  6. HEPARIN [Concomitant]
     Dosage: UNK
     Dates: start: 20101227, end: 20101231
  7. PANTOPRAZOLE [Concomitant]
     Dosage: 40 MG, 1X/DAY
     Dates: start: 20101211, end: 20101227
  8. SYMBICORT [Concomitant]
     Dosage: 160/415 UG
     Dates: start: 20100521
  9. GLYCERYL TRINITRATE [Concomitant]
     Dosage: UNK
     Dates: start: 19950101
  10. VEXOL [Concomitant]
     Dosage: UNK
     Dates: start: 20071205
  11. DIAMOX [Concomitant]
     Dosage: 750 MG
     Dates: start: 20101226, end: 20101227
  12. KALINOR-BRAUSETABLETTEN [Concomitant]
     Dosage: UNK
     Dates: start: 20101226, end: 20110101
  13. CORNEREGEL [Concomitant]
     Dosage: UNK
     Dates: start: 20101227
  14. CALCIUM CARBONATE [Concomitant]
     Dosage: 500 MG DAILY
     Dates: start: 20060909
  15. OFLOXACIN [Concomitant]
     Dosage: UNK
     Dates: start: 20101227

REACTIONS (2)
  - EYE HAEMORRHAGE [None]
  - INTRAOCULAR PRESSURE TEST ABNORMAL [None]
